FAERS Safety Report 6429581-3 (Version None)
Quarter: 2009Q4

REPORT INFORMATION
  Report Type: 
  Country: None (occurrence: None)
  Receive Date: 20091103
  Receipt Date: 20091019
  Transmission Date: 20100525
  Serious: Yes (Death)
  Sender: FDA-Public Use
  Company Number: 2009AC000293

PATIENT
  Age: 80 Year
  Sex: Male
  Weight: 100.2449 kg

DRUGS (6)
  1. DIGOXIN [Suspect]
     Dosage: .125 MG;PO
     Route: 048
     Dates: start: 20061201, end: 20080329
  2. ALPRAZOLAM [Concomitant]
  3. AVINZA [Concomitant]
  4. FUROSEMIDE [Concomitant]
  5. DILTIAZEM [Concomitant]
  6. ENALAPRIL MALEATE [Concomitant]

REACTIONS (14)
  - BLOOD CREATININE INCREASED [None]
  - CARDIAC ARREST [None]
  - CYANOSIS [None]
  - DIZZINESS [None]
  - ECONOMIC PROBLEM [None]
  - HEADACHE [None]
  - HEART RATE IRREGULAR [None]
  - HYPERTENSION [None]
  - MYOCARDIAL INFARCTION [None]
  - PAIN [None]
  - PULSE ABSENT [None]
  - RESPIRATORY ARREST [None]
  - SUDDEN DEATH [None]
  - TACHYCARDIA [None]
